FAERS Safety Report 10435693 (Version 1)
Quarter: 2014Q3

REPORT INFORMATION
  Report Type: Report from Study
  Country: PH (occurrence: PH)
  Receive Date: 20140908
  Receipt Date: 20140908
  Transmission Date: 20150326
  Serious: No
  Sender: FDA-Public Use
  Company Number: PHHY2014PH106644

PATIENT
  Sex: Female

DRUGS (2)
  1. TASIGNA [Suspect]
     Active Substance: NILOTINIB
     Dosage: 300 MG,DAILY
     Route: 048
     Dates: start: 20140707, end: 20140822
  2. TASIGNA [Suspect]
     Active Substance: NILOTINIB
     Dosage: 600 MG, DAILY
     Route: 048
     Dates: start: 20140823

REACTIONS (1)
  - Underdose [Unknown]
